FAERS Safety Report 7013159-7 (Version None)
Quarter: 2010Q3

REPORT INFORMATION
  Report Type: 
  Country: None (occurrence: None)
  Receive Date: 20100924
  Receipt Date: 20100917
  Transmission Date: 20110219
  Serious: Yes (Other)
  Sender: FDA-Public Use
  Company Number: US-PFIZER INC-2010118984

PATIENT
  Sex: Male
  Weight: 82 kg

DRUGS (2)
  1. CHANTIX [Suspect]
     Indication: SMOKING CESSATION THERAPY
     Dosage: 0.5 MG, DAILY
     Route: 048
     Dates: start: 20100215, end: 20100315
  2. NEXIUM [Concomitant]
     Indication: GASTROOESOPHAGEAL REFLUX DISEASE
     Dosage: UNK

REACTIONS (11)
  - ABNORMAL DREAMS [None]
  - CONFUSIONAL STATE [None]
  - DIZZINESS [None]
  - GALLBLADDER DISORDER [None]
  - GASTROINTESTINAL DISORDER [None]
  - MIGRAINE [None]
  - NIGHTMARE [None]
  - PAIN [None]
  - PHARYNGEAL OEDEMA [None]
  - RENAL DISORDER [None]
  - VIITH NERVE PARALYSIS [None]
